FAERS Safety Report 6857806-9 (Version None)
Quarter: 2010Q3

REPORT INFORMATION
  Report Type: 
  Country: None (occurrence: None)
  Receive Date: 20100719
  Receipt Date: 20080425
  Transmission Date: 20110219
  Serious: No
  Sender: FDA-Public Use
  Company Number: US-PFIZER INC-2008010503

PATIENT
  Sex: Female
  Weight: 72.1 kg

DRUGS (8)
  1. CHANTIX [Suspect]
     Indication: SMOKING CESSATION THERAPY
     Route: 048
     Dates: start: 20080101, end: 20080111
  2. CHANTIX [Suspect]
     Indication: TOBACCO ABUSE
  3. PRILOSEC [Concomitant]
  4. TOPAMAX [Concomitant]
     Indication: MIGRAINE
  5. SOMA [Concomitant]
  6. ROXICODONE [Concomitant]
  7. ZOLPIDEM TARTRATE [Concomitant]
     Indication: INSOMNIA
  8. VITAMINS [Concomitant]

REACTIONS (2)
  - INSOMNIA [None]
  - TOBACCO USER [None]
